FAERS Safety Report 20102194 (Version 1)
Quarter: 2021Q4

REPORT INFORMATION
  Report Type: Spontaneous
  Country: US (occurrence: US)
  Receive Date: 20211123
  Receipt Date: 20211123
  Transmission Date: 20220304
  Serious: No
  Sender: FDA-Public Use
  Company Number: US-CHIESI-2021CHF05194

PATIENT
  Sex: Female

DRUGS (2)
  1. BRONCHITOL [Suspect]
     Active Substance: MANNITOL
     Indication: Product used for unknown indication
  2. BRONCHITOL [Suspect]
     Active Substance: MANNITOL
     Indication: Product used for unknown indication

REACTIONS (2)
  - Adverse drug reaction [Unknown]
  - Cough [Unknown]
